FAERS Safety Report 11997333 (Version 1)
Quarter: 2016Q1

REPORT INFORMATION
  Report Type: Report from Study
  Country: US (occurrence: US)
  Receive Date: 20160203
  Receipt Date: 20160203
  Transmission Date: 20160526
  Serious: Yes (Other)
  Sender: FDA-Public Use
  Company Number: US-AMGEN-USASL2016010241

PATIENT
  Age: 77 Year
  Sex: Female

DRUGS (1)
  1. PROLIA [Suspect]
     Active Substance: DENOSUMAB
     Indication: PRODUCT USED FOR UNKNOWN INDICATION
     Dosage: UNK
     Route: 065

REACTIONS (10)
  - Blood calcium decreased [Recovered/Resolved]
  - Rotator cuff syndrome [Unknown]
  - Asthenia [Unknown]
  - Systemic lupus erythematosus [Unknown]
  - Drug effect delayed [Unknown]
  - Renal failure [Unknown]
  - Arthritis [Unknown]
  - Cystitis [Recovered/Resolved]
  - Bedridden [Unknown]
  - Pain in extremity [Unknown]
